FAERS Safety Report 14523109 (Version 2)
Quarter: 2019Q1

REPORT INFORMATION
  Report Type: Report from Study
  Country: US (occurrence: US)
  Receive Date: 20180212
  Receipt Date: 20190215
  Transmission Date: 20190417
  Serious: Yes (Hospitalization, Other)
  Sender: FDA-Public Use
  Company Number: US-AMAG PHARMACEUTICALS, INC.-AMAG201800132

PATIENT

DRUGS (7)
  1. PRENATAL VITAMINS [Concomitant]
     Active Substance: VITAMINS
     Indication: PRENATAL CARE
     Route: 048
  2. HUMULIN N [Concomitant]
     Active Substance: INSULIN HUMAN
     Dosage: 24 UNITS, QHS
     Route: 058
     Dates: start: 20170515
  3. HUMULIN R [Concomitant]
     Active Substance: INSULIN HUMAN
     Indication: DIABETES MELLITUS
     Dosage: 10 UNITS, QD
     Route: 058
     Dates: start: 20170515
  4. ASPIRIN. [Concomitant]
     Active Substance: ASPIRIN
     Indication: PROPHYLAXIS
     Dosage: 81 MG, UNK
     Route: 048
     Dates: start: 20170814, end: 20171231
  5. MAKENA [Suspect]
     Active Substance: HYDROXYPROGESTERONE CAPROATE
     Indication: PREMATURE DELIVERY
     Dosage: 250 MG/ML, WEEKLY
     Route: 030
     Dates: start: 20170901, end: 20171228
  6. HUMULIN N [Concomitant]
     Active Substance: INSULIN HUMAN
     Indication: DIABETES MELLITUS
     Dosage: 10 UNITS, QD
     Route: 058
     Dates: start: 20170515
  7. HUMULIN R [Concomitant]
     Active Substance: INSULIN HUMAN
     Dosage: 8 UNITS, QHS
     Route: 058
     Dates: start: 20170515

REACTIONS (2)
  - Premature delivery [Recovered/Resolved]
  - Product dose omission [Recovered/Resolved]

NARRATIVE: CASE EVENT DATE: 20171128
